FAERS Safety Report 9386199 (Version 1)
Quarter: 2013Q3

REPORT INFORMATION
  Report Type: Spontaneous
  Country: US (occurrence: US)
  Receive Date: 20130708
  Receipt Date: 20130708
  Transmission Date: 20140515
  Serious: Yes (Other)
  Sender: FDA-Public Use
  Company Number: US-AMGEN-USASP2013047251

PATIENT
  Age: 61 Year
  Sex: Female

DRUGS (3)
  1. EPOGEN [Suspect]
     Indication: NEPHROGENIC ANAEMIA
     Dosage: 22000 UNIT, 3 TIMES/WK
     Route: 065
     Dates: start: 201007
  2. ZEMPLAR [Concomitant]
     Dosage: UNK
  3. VENOFER [Concomitant]
     Dosage: UNK

REACTIONS (1)
  - Haemoglobin decreased [Not Recovered/Not Resolved]
